FAERS Safety Report 18211130 (Version 1)
Quarter: 2020Q3

REPORT INFORMATION
  Report Type: Spontaneous
  Country: CA (occurrence: CA)
  Receive Date: 20200830
  Receipt Date: 20200830
  Transmission Date: 20201103
  Serious: Yes (Other)
  Sender: FDA-Public Use
  Company Number: CA-ROCHE-2666666

PATIENT
  Sex: Male

DRUGS (1)
  1. OCREVUS [Suspect]
     Active Substance: OCRELIZUMAB
     Indication: RELAPSING-REMITTING MULTIPLE SCLEROSIS
     Dosage: FORMULATION:300MG/10ML
     Route: 042

REACTIONS (3)
  - Accident [Unknown]
  - Ankylosing spondylitis [Not Recovered/Not Resolved]
  - Concussion [Not Recovered/Not Resolved]
